FAERS Safety Report 5431309-0 (Version None)
Quarter: 2007Q3

REPORT INFORMATION
  Report Type: 
  Country: None (occurrence: None)
  Receive Date: 20070830
  Receipt Date: 20070416
  Transmission Date: 20080115
  Serious: No
  Sender: FDA-Public Use
  Company Number: A0647427A

PATIENT
  Age: 51 Year
  Sex: Female

DRUGS (3)
  1. WELLBUTRIN XL [Suspect]
     Indication: DEPRESSION
     Dosage: 150MG PER DAY
     Route: 048
     Dates: start: 20070407
  2. VESICARE [Concomitant]
  3. PROVIGIL [Concomitant]

REACTIONS (3)
  - GINGIVAL PAIN [None]
  - GINGIVITIS [None]
  - OCULAR HYPERAEMIA [None]
